FAERS Safety Report 14166802 (Version 1)
Quarter: 2017Q4

REPORT INFORMATION
  Report Type: Spontaneous
  Country: US (occurrence: US)
  Receive Date: 20171107
  Receipt Date: 20171107
  Transmission Date: 20180321
  Serious: No
  Sender: FDA-Public Use
  Company Number: US-ASTRAZENECA-2017SF11208

PATIENT
  Age: 43 Year
  Sex: Female
  Weight: 69.4 kg

DRUGS (29)
  1. VENTOLIN [Concomitant]
     Active Substance: ALBUTEROL SULFATE
     Indication: CHRONIC OBSTRUCTIVE PULMONARY DISEASE
     Dosage: INHALE 2 PUFFS EVERY 4 (FOUR) HOURS AS NEEDED
  2. ZITHROMAX [Concomitant]
     Active Substance: AZITHROMYCIN DIHYDRATE
     Indication: BRONCHITIS
     Dosage: TAKE 2 TABLETS (500 MG) ON DAY 1, FOLLOWED BY 1 TABLET (250 MG) ONCE DAILY ON DAYS 2 THROUGH 5.
  3. NICOTINE. [Concomitant]
     Active Substance: NICOTINE
     Dosage: 21 MG/24 HR; PLACE 1 PATCH ON THE SKIN DAILY
     Route: 062
  4. PROAIR HFA [Concomitant]
     Active Substance: ALBUTEROL SULFATE
     Indication: CHRONIC OBSTRUCTIVE PULMONARY DISEASE
     Dosage: INHALE 2 PUFFS EVERY 4 (FOUR) HOURS AS NEEDED
  5. NORCO [Concomitant]
     Active Substance: ACETAMINOPHEN\HYDROCODONE BITARTRATE
     Indication: MYOSITIS
     Dosage: 10-325 MG PER TABLET; TAKE 1 TABLET BY MOUTH EVERY 4 (FOUR) HOURS AS NEEDED
     Route: 048
  6. LYRICA [Concomitant]
     Active Substance: PREGABALIN
     Route: 048
  7. SOMA [Concomitant]
     Active Substance: CARISOPRODOL
     Indication: MUSCLE SPASMS
     Route: 048
  8. CODEINE [Concomitant]
     Active Substance: CODEINE
  9. DELTASONE [Concomitant]
     Active Substance: PREDNISONE
     Indication: CHRONIC OBSTRUCTIVE PULMONARY DISEASE
     Route: 048
  10. TESSALON [Concomitant]
     Active Substance: BENZONATATE
     Indication: COUGH
     Dosage: TAKE 1 CAPSULE (100 MG TOTAL) BY MOUTH EVERY 6 (SIX) HOURS AS NEEDED
     Route: 048
  11. ALBUTEROL. [Concomitant]
     Active Substance: ALBUTEROL
     Indication: WHEEZING
     Dosage: INHALE 2 PUFFS EVERY 4 (FOUR) HOURS AS NEEDED
  12. LASIX [Concomitant]
     Active Substance: FUROSEMIDE
     Route: 048
  13. PROAIR HFA [Concomitant]
     Active Substance: ALBUTEROL SULFATE
     Indication: WHEEZING
     Dosage: INHALE 2 PUFFS EVERY 4 (FOUR) HOURS AS NEEDED
  14. PROVENTIL [Concomitant]
     Active Substance: ALBUTEROL
     Indication: WHEEZING
     Dosage: INHALE 2 PUFFS EVERY 4 (FOUR) HOURS AS NEEDED
  15. VENTOLIN [Concomitant]
     Active Substance: ALBUTEROL SULFATE
     Indication: WHEEZING
     Dosage: INHALE 2 PUFFS EVERY 4 (FOUR) HOURS AS NEEDED
  16. NORCO [Concomitant]
     Active Substance: ACETAMINOPHEN\HYDROCODONE BITARTRATE
     Indication: MYALGIA
     Dosage: 10-325 MG PER TABLET; TAKE 1 TABLET BY MOUTH EVERY 4 (FOUR) HOURS AS NEEDED
     Route: 048
  17. MOTRIN [Concomitant]
     Active Substance: IBUPROFEN
     Indication: PAIN
     Route: 048
  18. PREMPRO [Concomitant]
     Active Substance: ESTROGENS, CONJUGATED\MEDROXYPROGESTERONE ACETATE
     Dosage: 0.625-5 MG PER TABLET; TAKE 1 TABLET BY MOUTH EVERY 1 (ONE) DAY
     Route: 048
  19. PREMPRO [Concomitant]
     Active Substance: ESTROGENS, CONJUGATED\MEDROXYPROGESTERONE ACETATE
     Dosage: 0.45-1.5 MG PER TABLET; TAKE 1 TABLET BY MOUTH EVERY 1 (ONE) DAY
     Route: 048
  20. PROVENTIL [Concomitant]
     Active Substance: ALBUTEROL
     Indication: CHRONIC OBSTRUCTIVE PULMONARY DISEASE
     Dosage: INHALE 2 PUFFS EVERY 4 (FOUR) HOURS AS NEEDED
  21. TESSALON [Concomitant]
     Active Substance: BENZONATATE
     Indication: BRONCHITIS
     Dosage: TAKE 1 CAPSULE (100 MG TOTAL) BY MOUTH EVERY 6 (SIX) HOURS AS NEEDED
     Route: 048
  22. TYLENOL [Suspect]
     Active Substance: ACETAMINOPHEN
     Indication: PAIN
     Dosage: UNKNOWN
     Route: 048
  23. KEFLEX [Suspect]
     Active Substance: CEPHALEXIN
     Indication: BRONCHITIS
     Dosage: UNKNOWN
     Route: 048
     Dates: start: 2016
  24. DUONEB [Concomitant]
     Active Substance: ALBUTEROL SULFATE\IPRATROPIUM BROMIDE
     Indication: CHRONIC OBSTRUCTIVE PULMONARY DISEASE
     Dosage: 0.5 MG-2 5 MG/ML NEBULIZER, TAKE 3 ML BY NEBULIZATION EVERY 6 (SIX) HOURS AS NEEDED
     Route: 055
  25. ADVIL [Concomitant]
     Active Substance: IBUPROFEN
     Indication: PAIN
     Route: 048
  26. DALIRESP [Suspect]
     Active Substance: ROFLUMILAST
     Indication: CHRONIC OBSTRUCTIVE PULMONARY DISEASE
     Route: 048
  27. DOXYCYCLINE. [Suspect]
     Active Substance: DOXYCYCLINE
     Indication: BRONCHITIS
     Dosage: UNKNOWN
     Route: 048
     Dates: start: 2016
  28. XANAX [Concomitant]
     Active Substance: ALPRAZOLAM
     Indication: ANXIETY
  29. PLETAL [Concomitant]
     Active Substance: CILOSTAZOL
     Route: 048

REACTIONS (11)
  - Wheezing [Recovering/Resolving]
  - Dyspnoea [Recovering/Resolving]
  - Oral candidiasis [Unknown]
  - Diarrhoea [Recovered/Resolved]
  - Cold sweat [Recovered/Resolved]
  - Back pain [Unknown]
  - Hot flush [Recovering/Resolving]
  - Pruritus [Recovered/Resolved]
  - Anxiety [Unknown]
  - Nervousness [Unknown]
  - Hyperhidrosis [Recovered/Resolved]

NARRATIVE: CASE EVENT DATE: 2016
